FAERS Safety Report 20222532 (Version 1)
Quarter: 2021Q4

REPORT INFORMATION
  Report Type: Report from Study
  Country: CH (occurrence: CG)
  Receive Date: 20211223
  Receipt Date: 20211223
  Transmission Date: 20220303
  Serious: Yes (Hospitalization, Other)
  Sender: FDA-Public Use
  Company Number: CH-BAYER-2014-147808

PATIENT
  Age: 40 Year
  Sex: Female

DRUGS (2)
  1. NIFURTIMOX [Suspect]
     Active Substance: NIFURTIMOX
     Indication: African trypanosomiasis
     Dosage: 5.75 DF DOSAGE FORM
     Route: 048
     Dates: start: 20091114, end: 20091123
  2. EFLORNITHINE [Suspect]
     Active Substance: EFLORNITHINE
     Indication: African trypanosomiasis
     Dosage: 94 ML TOTAL
     Route: 048
     Dates: start: 20091114, end: 20091120

REACTIONS (2)
  - Enteritis [Recovered/Resolved]
  - Diarrhoea [Recovered/Resolved]

NARRATIVE: CASE EVENT DATE: 20091116
